FAERS Safety Report 4592544-7 (Version None)
Quarter: 2005Q1

REPORT INFORMATION
  Report Type: 
  Country: None (occurrence: None)
  Receive Date: 20050222
  Receipt Date: 20050126
  Transmission Date: 20050727
  Serious: No
  Sender: FDA-Public Use
  Company Number: MED000027

PATIENT

DRUGS (1)
  1. HEPARIN SODIUM AND 5% DEXTROSE [Suspect]
     Dosage: INTRAVENOUS
     Route: 042

REACTIONS (5)
  - HAEMATOCRIT DECREASED [None]
  - HAEMOGLOBIN DECREASED [None]
  - MEDICATION ERROR [None]
  - OVERDOSE [None]
  - RETROPERITONEAL HAEMORRHAGE [None]
